FAERS Safety Report 13417024 (Version 1)
Quarter: 2017Q2

REPORT INFORMATION
  Report Type: Spontaneous
  Country: SE (occurrence: SE)
  Receive Date: 20170406
  Receipt Date: 20170406
  Transmission Date: 20170830
  Serious: Yes (Hospitalization)
  Sender: FDA-Public Use
  Company Number: SE-TEVA-757590ISR

PATIENT
  Age: 74 Year
  Sex: Male

DRUGS (2)
  1. SOTALOL. [Concomitant]
     Active Substance: SOTALOL
  2. GALANTAMINE. [Suspect]
     Active Substance: GALANTAMINE
     Route: 065

REACTIONS (1)
  - Sinus arrest [Unknown]
